FAERS Safety Report 6801640-2 (Version None)
Quarter: 2010Q2

REPORT INFORMATION
  Report Type: 
  Country: None (occurrence: None)
  Receive Date: 20100629
  Receipt Date: 20100621
  Transmission Date: 20101027
  Serious: Yes (Hospitalization)
  Sender: FDA-Public Use
  Company Number: CA-ASTRAZENECA-2010SE29288

PATIENT
  Age: 49 Year
  Sex: Male

DRUGS (9)
  1. SEROQUEL [Suspect]
     Route: 048
  2. SEROQUEL [Suspect]
     Route: 048
  3. REMERON RD [Suspect]
     Route: 065
  4. PEGETRON [Suspect]
     Route: 048
  5. PEGETRON [Suspect]
     Route: 058
  6. LOSEC I.V. [Concomitant]
  7. SYNTHROID [Concomitant]
  8. VENTOLIN [Concomitant]
  9. WELLBUTRIN [Concomitant]

REACTIONS (4)
  - AFFECT LABILITY [None]
  - EMOTIONAL DISTRESS [None]
  - INTENTIONAL OVERDOSE [None]
  - SUICIDE ATTEMPT [None]
